FAERS Safety Report 22180334 (Version 2)
Quarter: 2023Q2

REPORT INFORMATION
  Report Type: Report from Study
  Country: US (occurrence: US)
  Receive Date: 20230406
  Receipt Date: 20230608
  Transmission Date: 20230722
  Serious: Yes (Hospitalization, Other)
  Sender: FDA-Public Use
  Company Number: US-BoehringerIngelheim-2022-BI-151885

PATIENT
  Age: 77 Year
  Sex: Male

DRUGS (5)
  1. OFEV [Suspect]
     Active Substance: NINTEDANIB
     Indication: Idiopathic pulmonary fibrosis
     Route: 048
     Dates: start: 20210311, end: 20220202
  2. OFEV [Suspect]
     Active Substance: NINTEDANIB
     Indication: Interstitial lung disease
     Route: 048
     Dates: start: 20200311
  3. OFEV [Suspect]
     Active Substance: NINTEDANIB
     Route: 048
     Dates: end: 20220227
  4. ELIQUIS [Concomitant]
     Active Substance: APIXABAN
  5. ASPIRIN [Concomitant]
     Active Substance: ASPIRIN
     Indication: Product used for unknown indication

REACTIONS (15)
  - Haemoglobin decreased [Unknown]
  - Stent placement [Unknown]
  - Asthenia [Unknown]
  - Gastric disorder [Unknown]
  - Post procedural haemorrhage [Unknown]
  - Headache [Not Recovered/Not Resolved]
  - Epistaxis [Recovered/Resolved]
  - COVID-19 [Recovering/Resolving]
  - Decreased appetite [Unknown]
  - Ageusia [Unknown]
  - Diarrhoea [Unknown]
  - Weight decreased [Unknown]
  - Cough [Unknown]
  - Nausea [Unknown]
  - Vomiting [Unknown]

NARRATIVE: CASE EVENT DATE: 20220203
